FAERS Safety Report 5390510-5 (Version None)
Quarter: 2007Q3

REPORT INFORMATION
  Report Type: 
  Country: None (occurrence: None)
  Receive Date: 20070718
  Receipt Date: 20060817
  Transmission Date: 20080115
  Serious: No
  Sender: FDA-Public Use
  Company Number: US-KINGPHARMUSA00001-K200601065

PATIENT

DRUGS (7)
  1. LEVOXYL [Suspect]
     Indication: THYROIDITIS
     Dosage: 50 MCG, QD
     Route: 048
     Dates: start: 20060401, end: 20060817
  2. CYMBALTA [Concomitant]
     Indication: DEPRESSION
     Dosage: UNK, UNK
     Route: 048
  3. ADDERALL 10 [Concomitant]
     Indication: CHRONIC FATIGUE SYNDROME
     Dosage: UNK, UNK
     Route: 048
     Dates: end: 20060811
  4. XANAX - SLOW RELEASE [Concomitant]
     Indication: ANXIETY DISORDER
     Dosage: UNK, UNK
     Route: 048
  5. QUIBRON [Concomitant]
     Indication: ASTHMA
     Dosage: UNK, UNK
     Route: 048
  6. SINGULAIR [Concomitant]
     Indication: ASTHMA
     Dosage: UNK, UNK
     Route: 048
  7. BISOPROLOL [Concomitant]
     Indication: HYPERTENSION
     Dosage: UNK, UNK
     Route: 048

REACTIONS (8)
  - AGITATION [None]
  - FEELING JITTERY [None]
  - INSOMNIA [None]
  - IRRITABILITY [None]
  - LOGORRHOEA [None]
  - PALPITATIONS [None]
  - PSYCHOMOTOR HYPERACTIVITY [None]
  - RESTLESSNESS [None]
